FAERS Safety Report 9935934 (Version 1)
Quarter: 2014Q1

REPORT INFORMATION
  Report Type: Spontaneous
  Country: US (occurrence: US)
  Receive Date: 20140228
  Receipt Date: 20140228
  Transmission Date: 20141002
  Serious: No
  Sender: FDA-Public Use
  Company Number: US-AMGEN-USASP2013073409

PATIENT
  Age: 47 Year
  Sex: Female
  Weight: 72.56 kg

DRUGS (4)
  1. ENBREL [Suspect]
     Indication: PRODUCT USED FOR UNKNOWN INDICATION
     Dosage: 50 MG, QWK
     Route: 058
  2. PRISTIQ [Concomitant]
     Dosage: 100 MG, UNK
  3. MULTIVITAMINS, PLAIN [Concomitant]
     Dosage: UNK
  4. ZEGERID                            /00661201/ [Concomitant]
     Dosage: 20-1100

REACTIONS (1)
  - Therapeutic response decreased [Unknown]
